FAERS Safety Report 10293006 (Version 1)
Quarter: 2014Q3

REPORT INFORMATION
  Report Type: Spontaneous
  Country: US (occurrence: US)
  Receive Date: 20140710
  Receipt Date: 20140710
  Transmission Date: 20150326
  Serious: No
  Sender: FDA-Public Use
  Company Number: US-PURDUE-USA-2013-0107880

PATIENT
  Age: 44 Year
  Sex: Female

DRUGS (3)
  1. BUTRANS [Suspect]
     Active Substance: BUPRENORPHINE
     Indication: INTERVERTEBRAL DISC PROTRUSION
     Dosage: 10 MCG/HR, WEEKLY
     Route: 062
     Dates: start: 20131008
  2. BUTRANS [Suspect]
     Active Substance: BUPRENORPHINE
     Indication: INTERVERTEBRAL DISC PROTRUSION
     Dosage: 5 MCG/HR, UNK
     Route: 062
     Dates: start: 201309, end: 201310
  3. HYDROCODONE [Concomitant]
     Active Substance: HYDROCODONE
     Indication: PAIN
     Dosage: 7.5 MG, UNK
     Route: 048
     Dates: start: 201309

REACTIONS (11)
  - Application site erythema [Not Recovered/Not Resolved]
  - Bronchitis [Not Recovered/Not Resolved]
  - Extra dose administered [Recovered/Resolved]
  - Hyperhidrosis [Not Recovered/Not Resolved]
  - Wrong technique in drug usage process [Unknown]
  - Drug ineffective [Recovered/Resolved]
  - Application site irritation [Not Recovered/Not Resolved]
  - Application site pruritus [Not Recovered/Not Resolved]
  - Product adhesion issue [Not Recovered/Not Resolved]
  - Pain [Recovered/Resolved]
  - Application site rash [Not Recovered/Not Resolved]

NARRATIVE: CASE EVENT DATE: 201309
